FAERS Safety Report 4784230-5 (Version None)
Quarter: 2005Q3

REPORT INFORMATION
  Report Type: 
  Country: None (occurrence: None)
  Receive Date: 20050930
  Receipt Date: 20050923
  Transmission Date: 20060218
  Serious: Yes (Other)
  Sender: FDA-Public Use
  Company Number: PHBS2005CH14010

PATIENT
  Age: 59 Year
  Sex: Female

DRUGS (4)
  1. AREDIA [Suspect]
     Indication: OSTEOPOROSIS
     Dates: start: 20050228
  2. AREDIA [Suspect]
     Dates: start: 20050818
  3. MAGNESIUM [Concomitant]
  4. CALCIUM GLUCONATE [Concomitant]

REACTIONS (3)
  - HEADACHE [None]
  - HYPERACUSIS [None]
  - TINNITUS [None]
